FAERS Safety Report 17064281 (Version 7)
Quarter: 2022Q1

REPORT INFORMATION
  Report Type: Spontaneous
  Country: US (occurrence: US)
  Receive Date: 20191122
  Receipt Date: 20220318
  Transmission Date: 20220423
  Serious: No
  Sender: FDA-Public Use
  Company Number: US-PFIZER INC-2019313619

PATIENT
  Age: 78 Year
  Sex: Female
  Weight: 72.57 kg

DRUGS (3)
  1. LORBRENA [Suspect]
     Active Substance: LORLATINIB
     Indication: Lung cancer metastatic
     Dosage: 100 MG, 1X/DAY
     Route: 048
  2. LORBRENA [Suspect]
     Active Substance: LORLATINIB
     Dosage: 25 MG
  3. LORBRENA [Suspect]
     Active Substance: LORLATINIB
     Dosage: 75 MG, DAILY [TAKE 3 TABLETS (75 MG) BY MOUTH DAILY]
     Route: 048
     Dates: start: 20210224

REACTIONS (4)
  - Illness [Unknown]
  - Memory impairment [Unknown]
  - Cerebral disorder [Unknown]
  - Neoplasm progression [Unknown]
